FAERS Safety Report 12843890 (Version 1)
Quarter: 2016Q4

REPORT INFORMATION
  Report Type: Spontaneous
  Country: US (occurrence: US)
  Receive Date: 20161013
  Receipt Date: 20161013
  Transmission Date: 20170207
  Serious: Yes (Other)
  Sender: FDA-Public Use
  Company Number: US-OTSUKA-2016_023281

PATIENT
  Sex: Male

DRUGS (2)
  1. REXULTI [Suspect]
     Active Substance: BREXPIPRAZOLE
     Dosage: 0.5 MG, UNK
     Route: 065
  2. REXULTI [Suspect]
     Active Substance: BREXPIPRAZOLE
     Indication: SLEEP DISORDER
     Dosage: 1 MG, UNK
     Route: 065

REACTIONS (6)
  - Off label use [Unknown]
  - Feeling abnormal [Unknown]
  - Pain [Unknown]
  - Condition aggravated [Unknown]
  - Restlessness [Unknown]
  - Gait disturbance [Unknown]
